FAERS Safety Report 9455265 (Version 2)
Quarter: 2014Q1

REPORT INFORMATION
  Report Type: Spontaneous
  Country: US (occurrence: US)
  Receive Date: 20130813
  Receipt Date: 20140328
  Transmission Date: 20141002
  Serious: Yes (Hospitalization, Other)
  Sender: FDA-Public Use
  Company Number: US-BAYER-2013-095404

PATIENT
  Age: 18 Year
  Sex: Female
  Weight: 81.63 kg

DRUGS (5)
  1. YASMIN [Suspect]
     Indication: CONTRACEPTION
     Dosage: UNK
     Dates: start: 200805, end: 200808
  2. LEVAQUIN [Concomitant]
  3. ONDANSETRON [Concomitant]
     Dosage: UNK
     Dates: start: 20080702
  4. VICODIN [Concomitant]
  5. BENADRYL [Concomitant]

REACTIONS (9)
  - Cholecystitis chronic [None]
  - Pulmonary embolism [None]
  - Pulmonary infarction [None]
  - Injury [None]
  - Pain [None]
  - General physical health deterioration [None]
  - Emotional distress [None]
  - Anxiety [None]
  - Pain [None]
